FAERS Safety Report 5100190-1 (Version None)
Quarter: 2006Q3

REPORT INFORMATION
  Report Type: 
  Country: None (occurrence: None)
  Receive Date: 20060728
  Receipt Date: 20060508
  Transmission Date: 20061208
  Serious: Yes (Hospitalization)
  Sender: FDA-Public Use
  Company Number: 200610167

PATIENT
  Age: 49 Year
  Sex: Female

DRUGS (17)
  1. CARIMUNE [Suspect]
     Indication: BONE MARROW TRANSPLANT
     Dosage: SEE IMAGE
     Route: 042
     Dates: start: 20060503, end: 20060505
  2. CARIMUNE [Suspect]
  3. LEVAQUIN [Concomitant]
  4. HEPARIN [Concomitant]
  5. ALBUTEROL [Concomitant]
  6. ATROVENT [Concomitant]
  7. ZYRTEC [Concomitant]
  8. MONTELUKAST [Concomitant]
  9. ESTROGENS SOL/INJ [Concomitant]
  10. AMLODIPINE [Concomitant]
  11. NEURONTIN [Concomitant]
  12. DOCUSATE [Concomitant]
  13. VITAMIN CAP [Concomitant]
  14. PREDNISONE TAB [Concomitant]
  15. NEXIUM [Concomitant]
  16. OXYBUTYNIN [Concomitant]
  17. FENTANYL [Concomitant]

REACTIONS (5)
  - DYSPNOEA [None]
  - HYPONATRAEMIA [None]
  - PRURITUS [None]
  - RENAL FAILURE ACUTE [None]
  - WEIGHT INCREASED [None]
